FAERS Safety Report 8936360 (Version 3)
Quarter: 2014Q1

REPORT INFORMATION
  Report Type: Spontaneous
  Country: US (occurrence: US)
  Receive Date: 20121130
  Receipt Date: 20140103
  Transmission Date: 20141002
  Serious: Yes (Hospitalization, Disabling, Other)
  Sender: FDA-Public Use
  Company Number: US-009507513-1211USA010855

PATIENT
  Sex: Female
  Weight: 86.17 kg

DRUGS (1)
  1. NUVARING [Suspect]
     Indication: CONTRACEPTION
     Dosage: UNK
     Route: 067
     Dates: start: 201009, end: 20101207

REACTIONS (15)
  - Pulmonary embolism [Unknown]
  - Breast pain [Not Recovered/Not Resolved]
  - Constipation [Unknown]
  - Malaise [Unknown]
  - Nausea [Unknown]
  - Back pain [Unknown]
  - Gastrooesophageal reflux disease [Unknown]
  - Muscle spasms [Unknown]
  - Bronchospasm [Unknown]
  - Upper respiratory tract infection [Unknown]
  - Migraine [Unknown]
  - Myositis [Unknown]
  - Myalgia [Unknown]
  - Headache [Unknown]
  - Phlebitis [Unknown]
